FAERS Safety Report 18430803 (Version 1)
Quarter: 2020Q4

REPORT INFORMATION
  Report Type: Spontaneous
  Country: US (occurrence: US)
  Receive Date: 20201026
  Receipt Date: 20201026
  Transmission Date: 20210114
  Serious: Yes (Hospitalization)
  Sender: FDA-Public Use
  Company Number: None

PATIENT
  Age: 44 Year
  Sex: Female
  Weight: 87 kg

DRUGS (2)
  1. TRUXIMA [Suspect]
     Active Substance: RITUXIMAB-ABBS
     Indication: BURKITT^S LYMPHOMA
     Dosage: ?          OTHER FREQUENCY:WEEKLY X2 DOSES;?
     Route: 041
     Dates: start: 20201004, end: 20201011
  2. TRUXIMA [Suspect]
     Active Substance: RITUXIMAB-ABBS
     Indication: POST TRANSPLANT LYMPHOPROLIFERATIVE DISORDER
     Dosage: ?          OTHER FREQUENCY:WEEKLY X2 DOSES;?
     Route: 041
     Dates: start: 20201004, end: 20201011

REACTIONS (5)
  - Product substitution issue [None]
  - Hypoxia [None]
  - Pyrexia [None]
  - Hypotension [None]
  - Lung infiltration [None]

NARRATIVE: CASE EVENT DATE: 20201004
